FAERS Safety Report 5786649-2 (Version None)
Quarter: 2008Q2

REPORT INFORMATION
  Report Type: 
  Country: None (occurrence: None)
  Receive Date: 20080624
  Receipt Date: 20080612
  Transmission Date: 20081010
  Serious: Yes (Other)
  Sender: FDA-Public Use
  Company Number: CA-PFIZER INC-2008051701

PATIENT
  Age: 44 Year
  Sex: Male

DRUGS (2)
  1. CHANTIX [Suspect]
     Route: 048
  2. NAPROXEN [Concomitant]

REACTIONS (12)
  - ARTHRALGIA [None]
  - CONSTIPATION [None]
  - DEFORMITY THORAX [None]
  - EYE PAIN [None]
  - MUSCLE SPASMS [None]
  - MUSCULAR WEAKNESS [None]
  - MUSCULOSKELETAL CHEST PAIN [None]
  - MYALGIA [None]
  - PAIN IN EXTREMITY [None]
  - POSTURE ABNORMAL [None]
  - TEMPERATURE INTOLERANCE [None]
  - VERTIGO [None]
